FAERS Safety Report 11646302 (Version 1)
Quarter: 2015Q4

REPORT INFORMATION
  Report Type: Spontaneous
  Country: US (occurrence: US)
  Receive Date: 20151020
  Receipt Date: 20151020
  Transmission Date: 20160304
  Serious: No
  Sender: FDA-Public Use
  Company Number: US-ROCHE-1618896

PATIENT
  Age: 77 Year
  Sex: Female

DRUGS (6)
  1. B6 [Concomitant]
     Active Substance: PYRIDOXINE HYDROCHLORIDE
  2. PRAVASTATIN [Concomitant]
     Active Substance: PRAVASTATIN\PRAVASTATIN SODIUM
  3. IBUPROFEN. [Concomitant]
     Active Substance: IBUPROFEN
  4. ESBRIET [Suspect]
     Active Substance: PIRFENIDONE
     Indication: IDIOPATHIC PULMONARY FIBROSIS
     Route: 048
     Dates: start: 20150611
  5. ASPIRIN. [Concomitant]
     Active Substance: ASPIRIN
  6. TESSALON [Concomitant]
     Active Substance: BENZONATATE

REACTIONS (4)
  - Lethargy [Unknown]
  - Depression [Unknown]
  - Abdominal discomfort [Unknown]
  - Decreased appetite [Unknown]
